FAERS Safety Report 12214374 (Version 1)
Quarter: 2016Q1

REPORT INFORMATION
  Report Type: Spontaneous
  Country: US (occurrence: None)
  Receive Date: 20160325
  Receipt Date: 20160325
  Transmission Date: 20160526
  Serious: Yes (Other)
  Sender: FDA-Public Use
  Company Number: None

PATIENT
  Age: 58 Year
  Sex: Male
  Weight: 56 kg

DRUGS (12)
  1. NOVOLOG [Suspect]
     Active Substance: INSULIN ASPART
     Indication: TYPE 2 DIABETES MELLITUS
     Route: 058
     Dates: start: 20160217, end: 20160323
  2. ASA [Concomitant]
     Active Substance: ASPIRIN
  3. MEXITIL [Concomitant]
     Active Substance: MEXILETINE HYDROCHLORIDE
  4. CRESTOR [Concomitant]
     Active Substance: ROSUVASTATIN CALCIUM
  5. PLAVIX [Concomitant]
     Active Substance: CLOPIDOGREL BISULFATE
  6. LEVEMIR [Concomitant]
     Active Substance: INSULIN DETEMIR
  7. PRINIVIL [Concomitant]
     Active Substance: LISINOPRIL
  8. COREG [Concomitant]
     Active Substance: CARVEDILOL
  9. TRIUMEQ [Concomitant]
     Active Substance: ABACAVIR SULFATE\DOLUTEGRAVIR SODIUM\LAMIVUDINE
  10. DIFLUCAN [Concomitant]
     Active Substance: FLUCONAZOLE
  11. PRILOSEC [Concomitant]
     Active Substance: OMEPRAZOLE MAGNESIUM
  12. QUINIDINE GLUCONATE CR [Concomitant]
     Active Substance: QUINIDINE GLUCONATE

REACTIONS (4)
  - Extra dose administered [None]
  - Feeling abnormal [None]
  - Blood glucose decreased [None]
  - Blood glucose increased [None]

NARRATIVE: CASE EVENT DATE: 20160311
